FAERS Safety Report 15471301 (Version 1)
Quarter: 2018Q4

REPORT INFORMATION
  Report Type: Spontaneous
  Country: US (occurrence: US)
  Receive Date: 20181006
  Receipt Date: 20181006
  Transmission Date: 20190205
  Serious: No
  Sender: FDA-Public Use
  Company Number: US-TARO-2018TAR00421

PATIENT
  Age: 92 Year
  Sex: Female

DRUGS (2)
  1. FLUOCINOLONE ACETONIDE TOPICAL SOLUTION USP 0.01% [Suspect]
     Active Substance: FLUOCINOLONE ACETONIDE
     Indication: PRURITUS
     Dosage: ^FINGERFULL AMOUNT^, 2X/DAY
     Route: 061
  2. FLUOCINOLONE ACETONIDE TOPICAL SOLUTION USP 0.01% [Suspect]
     Active Substance: FLUOCINOLONE ACETONIDE
     Dosage: ^FINGERFULL AMOUNT^, 1X/DAY FOR 5 TO 6 DAYS, THEN DISCONTINUES FOR MONTHS BEFORE USING AGAIN

REACTIONS (3)
  - Hair colour changes [Unknown]
  - Intentional product misuse [Unknown]
  - Inappropriate schedule of product administration [Unknown]

NARRATIVE: CASE EVENT DATE: 2015
